FAERS Safety Report 5908509-6 (Version None)
Quarter: 2008Q3

REPORT INFORMATION
  Report Type: 
  Country: None (occurrence: None)
  Receive Date: 20080930
  Receipt Date: 20080915
  Transmission Date: 20090109
  Serious: Yes (Other)
  Sender: FDA-Public Use
  Company Number: 1-16637416

PATIENT

DRUGS (1)
  1. OVIDE [Suspect]
     Dosage: CUTANEOUS
     Route: 003

REACTIONS (1)
  - THERMAL BURN [None]
